FAERS Safety Report 7512357-3 (Version None)
Quarter: 2011Q2

REPORT INFORMATION
  Report Type: 
  Country: None (occurrence: None)
  Receive Date: 20110531
  Receipt Date: 20110517
  Transmission Date: 20111010
  Serious: Yes (Other)
  Sender: FDA-Public Use
  Company Number: PHHY2011CA43629

PATIENT
  Sex: Female

DRUGS (3)
  1. AFINITOR [Suspect]
     Dosage: 10 MG EVERY OTHER DAY
     Route: 048
     Dates: start: 20110301
  2. SANDOSTATIN LAR [Suspect]
     Indication: PANCREATIC NEUROENDOCRINE TUMOUR
     Dosage: 40 MG EVERY 4 WEEKS
     Route: 030
     Dates: start: 20100319
  3. AFINITOR [Suspect]
     Indication: PANCREATIC CARCINOMA
     Dosage: 10 MG, QD
     Route: 048
     Dates: start: 20110301

REACTIONS (3)
  - COUGH [None]
  - GALLBLADDER OBSTRUCTION [None]
  - NASOPHARYNGITIS [None]
